FAERS Safety Report 9819721 (Version 1)
Quarter: 2014Q1

REPORT INFORMATION
  Report Type: Report from Study
  Country: EC (occurrence: EC)
  Receive Date: 20140116
  Receipt Date: 20140116
  Transmission Date: 20141002
  Serious: Yes (Death)
  Sender: FDA-Public Use
  Company Number: EC-ROCHE-1334417

PATIENT
  Sex: Female

DRUGS (2)
  1. BEVACIZUMAB [Suspect]
     Indication: BREAST CANCER METASTATIC
     Route: 065
     Dates: start: 20091111, end: 20111103
  2. CAPECITABINE [Concomitant]
     Indication: BREAST CANCER
     Route: 065
     Dates: start: 20070827

REACTIONS (1)
  - Death [Fatal]
